FAERS Safety Report 23580400 (Version 2)
Quarter: 2024Q2

REPORT INFORMATION
  Report Type: Spontaneous
  Country: US (occurrence: US)
  Receive Date: 20240229
  Receipt Date: 20240417
  Transmission Date: 20240716
  Serious: No
  Sender: FDA-Public Use
  Company Number: US-JNJFOC-20240180898

PATIENT
  Age: 66 Year
  Sex: Female

DRUGS (22)
  1. TYLENOL [Suspect]
     Active Substance: ACETAMINOPHEN
     Indication: Headache
     Route: 065
  2. TYLENOL [Suspect]
     Active Substance: ACETAMINOPHEN
     Indication: Neck pain
     Route: 065
     Dates: start: 202401
  3. TYLENOL [Suspect]
     Active Substance: ACETAMINOPHEN
     Indication: Infusion site pain
  4. TYVASO DPI [Concomitant]
     Active Substance: TREPROSTINIL
     Indication: Pulmonary arterial hypertension
     Route: 055
     Dates: start: 202310, end: 202310
  5. TYVASO DPI [Concomitant]
     Active Substance: TREPROSTINIL
     Route: 055
     Dates: start: 202310
  6. TYVASO DPI [Concomitant]
     Active Substance: TREPROSTINIL
     Route: 055
     Dates: start: 2023
  7. TYVASO DPI [Concomitant]
     Active Substance: TREPROSTINIL
     Route: 055
     Dates: start: 2023
  8. TYVASO DPI [Concomitant]
     Active Substance: TREPROSTINIL
     Route: 055
     Dates: start: 202310, end: 2023
  9. ADEMPAS [Concomitant]
     Active Substance: RIOCIGUAT
     Indication: Product used for unknown indication
     Route: 065
  10. ORENITRAM [Concomitant]
     Active Substance: TREPROSTINIL
     Indication: Pulmonary arterial hypertension
     Route: 048
     Dates: start: 202105, end: 202310
  11. ORENITRAM [Concomitant]
     Active Substance: TREPROSTINIL
     Route: 048
  12. REMODULIN [Concomitant]
     Active Substance: TREPROSTINIL
     Indication: Pulmonary arterial hypertension
     Route: 042
  13. REMODULIN [Concomitant]
     Active Substance: TREPROSTINIL
     Route: 042
  14. REMODULIN [Concomitant]
     Active Substance: TREPROSTINIL
     Route: 058
     Dates: start: 202401
  15. REMODULIN [Concomitant]
     Active Substance: TREPROSTINIL
     Route: 058
     Dates: start: 202403
  16. TRIAMCINOLONE [Concomitant]
     Active Substance: TRIAMCINOLONE
     Indication: Infusion site pain
     Route: 065
  17. LIDOCAINE HYDROCHLORIDE [Concomitant]
     Active Substance: LIDOCAINE HYDROCHLORIDE
     Indication: Erythema
     Route: 061
  18. LIDOCAINE HYDROCHLORIDE [Concomitant]
     Active Substance: LIDOCAINE HYDROCHLORIDE
     Indication: Infusion site discomfort
  19. PRILOCAINE [Concomitant]
     Active Substance: PRILOCAINE
     Indication: Product used for unknown indication
     Route: 065
  20. ALEVE [Concomitant]
     Active Substance: NAPROXEN SODIUM
     Indication: Infusion site pain
     Route: 065
  21. FLONASE [Concomitant]
     Active Substance: FLUTICASONE PROPIONATE
     Indication: Infusion site pain
     Route: 065
  22. ONDANSETRON HYDROCHLORIDE [Concomitant]
     Active Substance: ONDANSETRON HYDROCHLORIDE
     Indication: Product used for unknown indication
     Route: 065

REACTIONS (1)
  - Product use in unapproved indication [Unknown]

NARRATIVE: CASE EVENT DATE: 20240101
